FAERS Safety Report 24317923 (Version 1)
Quarter: 2024Q3

REPORT INFORMATION
  Report Type: Spontaneous
  Country: FR (occurrence: FR)
  Receive Date: 20240913
  Receipt Date: 20240913
  Transmission Date: 20241016
  Serious: Yes (Life-Threatening)
  Sender: FRESENIUS KABI
  Company Number: None

PATIENT
  Age: 41 Year
  Sex: Female
  Weight: 88 kg

DRUGS (5)
  1. PROPOFOL [Suspect]
     Active Substance: PROPOFOL
     Indication: Induction of anaesthesia
     Route: 042
     Dates: start: 20240524, end: 20240524
  2. KETAMINE [Suspect]
     Active Substance: KETAMINE
     Indication: Anaesthesia
     Route: 042
     Dates: start: 20240524, end: 20240524
  3. SUCCINYLCHOLINE CHLORIDE [Suspect]
     Active Substance: SUCCINYLCHOLINE CHLORIDE
     Indication: Induction of anaesthesia
     Route: 042
     Dates: start: 20240524, end: 20240524
  4. SUFENTANIL [Concomitant]
     Active Substance: SUFENTANIL
     Indication: Anaesthesia
     Route: 042
     Dates: start: 20240524, end: 20240524
  5. ISOFUNDINE [SODIUM ACETATE TRIHYDRATE, CALCIUM (CHLORIDE OF) DIHYDRATE [Concomitant]
     Indication: Product used for unknown indication
     Route: 042
     Dates: start: 20240524, end: 20240524

REACTIONS (1)
  - Anaphylactic shock [Recovered/Resolved]

NARRATIVE: CASE EVENT DATE: 20240524
